FAERS Safety Report 13234594 (Version 1)
Quarter: 2017Q1

REPORT INFORMATION
  Report Type: Spontaneous
  Country: US (occurrence: US)
  Receive Date: 20170215
  Receipt Date: 20170215
  Transmission Date: 20170428
  Serious: No
  Sender: FDA-Public Use
  Company Number: US-PFIZER INC-2017062316

PATIENT
  Sex: Female

DRUGS (1)
  1. ADVIL [Suspect]
     Active Substance: IBUPROFEN
     Dosage: UNK (1/2 A TABLET EVERY NIGHT/ 400 MG EVERY 6 HOURS, BUT SHE ONLY TOOK 1/2 A TABLET)

REACTIONS (3)
  - Somnolence [Unknown]
  - Intentional product misuse [Unknown]
  - Feeling abnormal [Unknown]
